FAERS Safety Report 9292527 (Version 2)
Quarter: 2013Q2

REPORT INFORMATION
  Report Type: Spontaneous
  Country: IT (occurrence: None)
  Receive Date: 20130513
  Receipt Date: 20130614
  Transmission Date: 20140414
  Serious: Yes (Other)
  Sender: FDA-Public Use
  Company Number: 2013STPI000159

PATIENT
  Age: 38 Year
  Sex: Female

DRUGS (6)
  1. CAMITOR ORAL SOLUTION (LEVOCARNITINE) SOLUTION [Suspect]
     Indication: FIBROMYALGIA
     Route: 048
     Dates: start: 20130422, end: 20130422
  2. STILNOX (ZOLPIDEM TARTRATE) [Concomitant]
  3. LEXOMIL (BROMAZEPAM) [Concomitant]
  4. MYOLASTAN (TETRAZEPAM) [Concomitant]
  5. CHOLECALCIFEROL (COLECALCIFEROL) [Concomitant]
  6. EUPANTOL (PANTOPRAZOLE SODIUM SESQUIHYDRATE) [Concomitant]

REACTIONS (4)
  - Monoplegia [None]
  - Headache [None]
  - Asthenia [None]
  - Off label use [None]
